FAERS Safety Report 5232616-7 (Version None)
Quarter: 2007Q1

REPORT INFORMATION
  Report Type: 
  Country: None (occurrence: None)
  Receive Date: 20070206
  Receipt Date: 20070206
  Transmission Date: 20070707
  Serious: Yes (Life-Threatening, Hospitalization)
  Sender: FDA-Public Use
  Company Number: None

PATIENT
  Age: 73 Year
  Sex: Male
  Weight: 61.2356 kg

DRUGS (13)
  1. METFORMIN HCL [Suspect]
     Indication: DIABETES MELLITUS
     Dosage: 850 MG BID PO
     Route: 048
     Dates: start: 20060807, end: 20061117
  2. GLIPIZIDE [Concomitant]
  3. ERGOCALCIFEROL [Concomitant]
  4. ACETAMINOPHEN [Concomitant]
  5. FLUOXETINE [Concomitant]
  6. TAMSULOSIN HCL [Concomitant]
  7. CALCIUM W/VIT D [Concomitant]
  8. CLOPIDOGREL [Concomitant]
  9. OMEPRAZOLE [Concomitant]
  10. SIMVASTATIN [Concomitant]
  11. DOCUSATE [Concomitant]
  12. SMZ-TMP [Concomitant]
  13. NPH INSULIN [Concomitant]

REACTIONS (2)
  - NAUSEA [None]
  - VOMITING [None]
